FAERS Safety Report 7287593-4 (Version None)
Quarter: 2011Q1

REPORT INFORMATION
  Report Type: 
  Country: None (occurrence: None)
  Receive Date: 20110211
  Receipt Date: 20110131
  Transmission Date: 20110831
  Serious: Yes (Death, Hospitalization)
  Sender: FDA-Public Use
  Company Number: JP-JNJFOC-20100510412

PATIENT
  Sex: Female
  Weight: 34 kg

DRUGS (20)
  1. FULCALIQ [Concomitant]
     Route: 042
  2. DOXIL [Suspect]
     Indication: OVARIAN CANCER RECURRENT
     Route: 042
  3. DUROTEP [Concomitant]
     Route: 062
  4. ROHYPNOL [Concomitant]
     Route: 048
  5. FULCALIQ [Concomitant]
     Route: 042
  6. OPSO [Concomitant]
     Route: 048
  7. SEROTONE [Concomitant]
     Route: 042
  8. DECADRON [Concomitant]
     Route: 042
  9. APIDRA [Concomitant]
     Route: 065
  10. DECADRON [Concomitant]
     Route: 042
  11. WHITE PETROLATUM [Concomitant]
     Route: 061
  12. APREPITANT [Concomitant]
     Route: 048
  13. DECADRON [Concomitant]
     Route: 042
  14. ZOMETA [Concomitant]
     Route: 042
  15. JUVELA [Concomitant]
     Route: 065
  16. LASIX [Concomitant]
     Route: 042
  17. APREPITANT [Concomitant]
     Route: 048
  18. DUROTEP [Concomitant]
     Route: 062
  19. DUROTEP [Concomitant]
     Route: 062
  20. SOLDACTONE [Concomitant]
     Route: 042

REACTIONS (19)
  - ALANINE AMINOTRANSFERASE INCREASED [None]
  - DELIRIUM [None]
  - FATIGUE [None]
  - BLOOD GLUCOSE INCREASED [None]
  - HYPOAESTHESIA [None]
  - VOMITING [None]
  - PLATELET COUNT DECREASED [None]
  - ASPARTATE AMINOTRANSFERASE INCREASED [None]
  - OEDEMA PERIPHERAL [None]
  - ASCITES [None]
  - SKIN EXFOLIATION [None]
  - RENAL FAILURE [None]
  - BLOOD ALKALINE PHOSPHATASE INCREASED [None]
  - PLEURAL EFFUSION [None]
  - OVARIAN CANCER [None]
  - PALMAR-PLANTAR ERYTHRODYSAESTHESIA SYNDROME [None]
  - ANAEMIA [None]
  - NAUSEA [None]
  - DECREASED APPETITE [None]
